FAERS Safety Report 19750840 (Version 2)
Quarter: 2021Q3

REPORT INFORMATION
  Report Type: Spontaneous
  Country: US (occurrence: US)
  Receive Date: 20210826
  Receipt Date: 20210928
  Transmission Date: 20211014
  Serious: Yes (Death)
  Sender: FDA-Public Use
  Company Number: US-PFIZER INC-202101057447

PATIENT
  Age: 46 Year
  Sex: Female

DRUGS (1)
  1. ZIRABEV [Suspect]
     Active Substance: BEVACIZUMAB-BVZR
     Indication: OVARIAN CANCER
     Dosage: 800 MG, CYCLIC (800MG Q 21 DAYS)
     Dates: end: 20210616

REACTIONS (1)
  - Death [Fatal]

NARRATIVE: CASE EVENT DATE: 20210616
